FAERS Safety Report 5648062-8 (Version None)
Quarter: 2008Q1

REPORT INFORMATION
  Report Type: 
  Country: None (occurrence: None)
  Receive Date: 20080229
  Receipt Date: 20080229
  Transmission Date: 20080703
  Serious: Yes (Hospitalization)
  Sender: FDA-Public Use
  Company Number: None

PATIENT
  Age: 69 Year
  Sex: Male

DRUGS (2)
  1. LEVOFLOXACIN [Suspect]
     Indication: URINARY TRACT INFECTION
     Dosage: 500MG EVERY DAY PO
     Route: 048
     Dates: start: 20071024, end: 20071028
  2. GLYBURIDE [Suspect]
     Dosage: 2.5MG BID PO
     Route: 047
     Dates: start: 20070716, end: 20071028

REACTIONS (3)
  - DIARRHOEA [None]
  - HYPOGLYCAEMIA [None]
  - PYREXIA [None]
